FAERS Safety Report 24578803 (Version 1)
Quarter: 2024Q4

REPORT INFORMATION
  Report Type: Spontaneous
  Country: FR (occurrence: FR)
  Receive Date: 20241105
  Receipt Date: 20241105
  Transmission Date: 20250114
  Serious: Yes (Life-Threatening, Other)
  Sender: ALEXION PHARMACEUTICALS
  Company Number: None

PATIENT
  Age: 53 Year
  Weight: 75 kg

DRUGS (6)
  1. TICAGRELOR [Suspect]
     Active Substance: TICAGRELOR
     Indication: Myocardial infarction
     Dosage: 180 MG/JOUR
  2. TICAGRELOR [Suspect]
     Active Substance: TICAGRELOR
     Dosage: 180 MG/JOUR
  3. TICAGRELOR [Suspect]
     Active Substance: TICAGRELOR
     Dosage: 180 MG/JOUR
  4. TICAGRELOR [Suspect]
     Active Substance: TICAGRELOR
     Dosage: 180 MG/JOUR
  5. CORDARONE [Suspect]
     Active Substance: AMIODARONE HYDROCHLORIDE
     Indication: Myocardial infarction
     Dosage: 900 MG/JOUR
  6. CORDARONE [Suspect]
     Active Substance: AMIODARONE HYDROCHLORIDE
     Dosage: 900 MG/JOUR

REACTIONS (2)
  - Cardiac arrest [Recovered/Resolved]
  - Sinus bradycardia [Recovered/Resolved]
